FAERS Safety Report 21896793 (Version 1)
Quarter: 2023Q1

REPORT INFORMATION
  Report Type: Spontaneous
  Country: GB (occurrence: GB)
  Receive Date: 20230123
  Receipt Date: 20230123
  Transmission Date: 20230417
  Serious: Yes (Other)
  Sender: FDA-Public Use
  Company Number: None

PATIENT
  Age: 65 Year
  Sex: Female
  Weight: 60 kg

DRUGS (10)
  1. RAMIPRIL [Suspect]
     Active Substance: RAMIPRIL
     Indication: Hypertension
     Dosage: TOTAL 7.5MG IF BP STILL RAISED
     Dates: start: 20230104
  2. GLYCOPYRRONIUM/ FORMOTEROL [Concomitant]
     Route: 055
     Dates: start: 20220303
  3. CARBOCYSTEINE [Concomitant]
     Active Substance: CARBOCYSTEINE
     Dates: start: 20211009
  4. CLARITHROMYCIN [Concomitant]
     Active Substance: CLARITHROMYCIN
     Dosage: (STANDBY SUPPLY)
     Dates: start: 20220714
  5. DOXYCYCLINE [Concomitant]
     Active Substance: DOXYCYCLINE
     Dosage: TAKE TWO NOW THEN ONE DAILY FOR 7 DAYS TO TREAT...
     Dates: start: 20221219, end: 20221226
  6. LERCANIDIPINE HYDROCHLORIDE [Concomitant]
     Active Substance: LERCANIDIPINE HYDROCHLORIDE
     Dates: start: 20220330, end: 20230104
  7. LOSARTAN [Concomitant]
     Active Substance: LOSARTAN
     Dates: start: 20230109
  8. ALBUTEROL [Concomitant]
     Active Substance: ALBUTEROL
     Dosage: AS NECESSARY
     Route: 055
     Dates: start: 20221124
  9. ALBUTEROL [Concomitant]
     Active Substance: ALBUTEROL
     Dosage: AS NECESSARY
     Route: 055
     Dates: start: 20211009
  10. SODIUM CHLORIDE [Concomitant]
     Active Substance: SODIUM CHLORIDE
     Dosage: USE AS DIRECTED 4-6 HOURLY, AS NECESSARY
     Dates: start: 20211118

REACTIONS (1)
  - Wheezing [Recovered/Resolved]
